FAERS Safety Report 14263018 (Version 2)
Quarter: 2017Q4

REPORT INFORMATION
  Report Type: Spontaneous
  Country: AU (occurrence: AU)
  Receive Date: 20171208
  Receipt Date: 20171228
  Transmission Date: 20180321
  Serious: Yes (Other)
  Sender: FDA-Public Use
  Company Number: AU-AMGEN-AUSSP2017180672

PATIENT
  Age: 58 Year
  Sex: Female

DRUGS (8)
  1. AVAPRO [Concomitant]
     Active Substance: IRBESARTAN
     Indication: BLOOD PRESSURE ABNORMAL
  2. PROLIA [Suspect]
     Active Substance: DENOSUMAB
     Indication: OSTEOPOROSIS
     Dosage: UNK
     Route: 065
     Dates: start: 20171106
  3. LITHIUM. [Concomitant]
     Active Substance: LITHIUM
  4. SODIUM VALPROATE [Concomitant]
     Active Substance: VALPROATE SODIUM
  5. PANADEINE FORTE [Concomitant]
     Active Substance: ACETAMINOPHEN\CODEINE PHOSPHATE
  6. PANADOL [Concomitant]
     Active Substance: ACETAMINOPHEN
  7. FRUSEMIDE [Concomitant]
     Active Substance: FUROSEMIDE
  8. CALTRATE WITH VITAMIN D [Concomitant]
     Active Substance: CALCIUM CARBONATE\CHOLECALCIFEROL

REACTIONS (14)
  - Intestinal obstruction [Not Recovered/Not Resolved]
  - Nausea [Unknown]
  - Anxiety [Unknown]
  - Bladder disorder [Unknown]
  - Gastrointestinal motility disorder [Unknown]
  - Vaginal discharge [Unknown]
  - Cervical discharge [Unknown]
  - Gastrointestinal disorder [Unknown]
  - Kidney infection [Unknown]
  - Depression [Unknown]
  - Urinary retention [Unknown]
  - Urinary tract infection [Unknown]
  - Dizziness [Unknown]
  - Dysuria [Unknown]

NARRATIVE: CASE EVENT DATE: 201711
